FAERS Safety Report 24730896 (Version 1)
Quarter: 2024Q4

REPORT INFORMATION
  Report Type: Spontaneous
  Country: GB (occurrence: GB)
  Receive Date: 20241213
  Receipt Date: 20241213
  Transmission Date: 20250114
  Serious: Yes (Hospitalization, Other)
  Sender: ACCORD
  Company Number: None

PATIENT
  Age: 55 Year
  Sex: Female

DRUGS (11)
  1. SERTRALINE [Suspect]
     Active Substance: SERTRALINE HYDROCHLORIDE
     Indication: Product used for unknown indication
     Dosage: SERTRALINE 100 MG TABLETS TWO TO BE TAKEN EACH MORNING  (SUSPENDED O/A)
  2. IBUPROFEN [Suspect]
     Active Substance: IBUPROFEN
     Indication: Product used for unknown indication
     Dosage: 10% GEL APPLY UP TO THREE TIMES A DAY - USES TDS (MORNING, TEA, BED)
  3. ACETAMINOPHEN [Concomitant]
     Active Substance: ACETAMINOPHEN
  4. FOLIC ACID [Concomitant]
     Active Substance: FOLIC ACID
  5. QUETIAPINE [Concomitant]
     Active Substance: QUETIAPINE
  6. LEVOTHYROXINE [Concomitant]
     Active Substance: LEVOTHYROXINE
  7. CHOLECALCIFEROL [Concomitant]
     Active Substance: CHOLECALCIFEROL
  8. ATORVASTATIN [Concomitant]
     Active Substance: ATORVASTATIN
  9. NITROFURANTOIN [Concomitant]
     Active Substance: NITROFURANTOIN
  10. CAFFEINE CITRATE [Concomitant]
     Active Substance: CAFFEINE CITRATE
  11. LANOLIN\LIGHT MINERAL OIL\PARAFFIN [Concomitant]
     Active Substance: LANOLIN\LIGHT MINERAL OIL\PARAFFIN

REACTIONS (1)
  - Gastrointestinal haemorrhage [Unknown]
